FAERS Safety Report 6965148-6 (Version None)
Quarter: 2010Q3

REPORT INFORMATION
  Report Type: 
  Country: None (occurrence: None)
  Receive Date: 20100903
  Receipt Date: 20100825
  Transmission Date: 20110219
  Serious: Yes (Hospitalization)
  Sender: FDA-Public Use
  Company Number: CA-JNJFOC-20100808717

PATIENT
  Sex: Female
  Weight: 59 kg

DRUGS (11)
  1. REMICADE [Suspect]
     Indication: CROHN'S DISEASE
     Route: 042
  2. PROGRAF [Concomitant]
  3. CORTISONE ACETATE [Concomitant]
  4. URSO FALK [Concomitant]
  5. CALCIUM W/VITAMIN D NOS [Concomitant]
  6. DILAUDID [Concomitant]
  7. ACETAMINOPHEN [Concomitant]
  8. EMPRACET [Concomitant]
  9. ATIVAN [Concomitant]
  10. COLACE [Concomitant]
  11. VITAMIN TAB [Concomitant]

REACTIONS (2)
  - ARTHRALGIA [None]
  - HYPOKINESIA [None]
